FAERS Safety Report 12396085 (Version 2)
Quarter: 2016Q2

REPORT INFORMATION
  Report Type: Report from Study
  Country: US (occurrence: US)
  Receive Date: 20160524
  Receipt Date: 20160527
  Transmission Date: 20160815
  Serious: Yes (Hospitalization, Other)
  Sender: FDA-Public Use
  Company Number: US-AMGEN-USASL2016064706

PATIENT
  Age: 75 Year
  Sex: Female

DRUGS (1)
  1. ENBREL [Suspect]
     Active Substance: ETANERCEPT
     Indication: RHEUMATOID ARTHRITIS
     Dosage: 50 MG, QWK
     Route: 065
     Dates: start: 1998

REACTIONS (8)
  - Bronchiectasis [Not Recovered/Not Resolved]
  - Limb operation [Unknown]
  - Amnesia [Unknown]
  - Joint range of motion decreased [Unknown]
  - Hypoacusis [Unknown]
  - Knee arthroplasty [Unknown]
  - Dysphonia [Not Recovered/Not Resolved]
  - Post procedural infection [Unknown]
